FAERS Safety Report 5324071-3 (Version None)
Quarter: 2007Q2

REPORT INFORMATION
  Report Type: 
  Country: None (occurrence: None)
  Receive Date: 20070514
  Receipt Date: 20070503
  Transmission Date: 20071010
  Serious: Yes (Hospitalization, Other)
  Sender: FDA-Public Use
  Company Number: US-ELI_LILLY_AND_COMPANY-US200610002115

PATIENT
  Age: 79 Year
  Sex: Female
  Weight: 48.526 kg

DRUGS (16)
  1. SIMVASTATIN [Concomitant]
     Dosage: 20 MG, DAILY (1/D)
  2. SYNTHROID [Concomitant]
     Dosage: 70 MG, EACH MORNING
  3. LABETALOL HCL [Concomitant]
     Indication: HYPERTENSION
     Dosage: 200 MG, 2/D
  4. FORTEO [Suspect]
     Indication: OSTEOPOROSIS
     Dosage: UNK, UNK
     Dates: start: 20050421, end: 20060610
  5. EVISTA [Suspect]
     Indication: OSTEOPOROSIS
     Dosage: 60 MG, DAILY (1/D)
     Dates: start: 20070201
  6. EVISTA [Suspect]
     Dosage: UNK D/F, UNK
  7. FUROSEMIDE [Concomitant]
     Indication: FLUID RETENTION
     Dosage: 40 MG, UNK
  8. FUROSEMIDE [Concomitant]
     Dosage: 20 MG, DAILY (1/D)
  9. DETROL [Concomitant]
     Dosage: 4 MG, UNK
  10. DETROL [Concomitant]
     Dosage: 2 MG, DAILY (1/D)
  11. DIOVAN HCT [Concomitant]
     Indication: HYPERTENSION
     Dosage: 80 MG, DAILY (1/D)
  12. COUMADIN [Concomitant]
     Dosage: 5 MG, UNK
  13. LIPITOR [Concomitant]
     Dosage: 10 MG, UNK
  14. ATENOLOL [Concomitant]
     Dosage: 50 MG, UNK
  15. K-TAB [Concomitant]
     Indication: ELECTROLYTE SUBSTITUTION THERAPY
     Dosage: 10 MEQ, 2/D
  16. MULTI-VITAMIN [Concomitant]

REACTIONS (4)
  - DRUG INEFFECTIVE [None]
  - HAEMORRHAGIC STROKE [None]
  - REFUSAL OF TREATMENT BY PATIENT [None]
  - TREATMENT FAILURE [None]
